FAERS Safety Report 15655327 (Version 11)
Quarter: 2021Q3

REPORT INFORMATION
  Report Type: Other
  Country: CA (occurrence: CA)
  Receive Date: 20181126
  Receipt Date: 20210707
  Transmission Date: 20211014
  Serious: Yes (Other)
  Sender: FDA-Public Use
  Company Number: CA-ROCHE-2207248

PATIENT
  Age: 56 Year
  Sex: Female

DRUGS (20)
  1. OMNARIS [Concomitant]
     Active Substance: CICLESONIDE
     Dosage: YES
  2. DECADRON [Concomitant]
     Active Substance: DEXAMETHASONE
     Route: 042
  3. BACLOFEN. [Concomitant]
     Active Substance: BACLOFEN
     Indication: MUSCLE SPASMS
     Dosage: YES
  4. PATADAY [Concomitant]
     Active Substance: OLOPATADINE HYDROCHLORIDE
     Indication: HYPERSENSITIVITY
  5. OCREVUS [Suspect]
     Active Substance: OCRELIZUMAB
     Indication: RELAPSING-REMITTING MULTIPLE SCLEROSIS
     Dosage: 300 MG ON DAY 0 AND 14, THEN 600 MG EVERY 6 MONTH
     Route: 042
     Dates: start: 20181019
  6. PROMETRIUM [Concomitant]
     Active Substance: PROGESTERONE
     Dosage: YES
  7. SOLIFENACIN [Concomitant]
     Active Substance: SOLIFENACIN
     Dosage: YES
  8. BUPROPION. [Concomitant]
     Active Substance: BUPROPION
     Indication: DEPRESSION
     Dosage: SOMETIMES SHE TAKES ONLY 300 MG A DAY ;ONGOING: YES
  9. SALINE [Concomitant]
     Active Substance: SODIUM CHLORIDE
     Indication: RHINITIS ALLERGIC
  10. SOLU?MEDROL [Concomitant]
     Active Substance: METHYLPREDNISOLONE SODIUM SUCCINATE
     Indication: HEPATITIS
  11. VALTREX [Concomitant]
     Active Substance: VALACYCLOVIR HYDROCHLORIDE
     Indication: ORAL HERPES
  12. ALMOTRIPTAN. [Concomitant]
     Active Substance: ALMOTRIPTAN
     Indication: MIGRAINE
  13. DEXILANT [Concomitant]
     Active Substance: DEXLANSOPRAZOLE
     Dosage: YES
  14. WELLBUTRIN [Concomitant]
     Active Substance: BUPROPION HYDROCHLORIDE
  15. BENADRYL [Concomitant]
     Active Substance: DIPHENHYDRAMINE HYDROCHLORIDE
     Indication: DUST ALLERGY
  16. CORTISONE [Concomitant]
     Active Substance: CORTISONE
  17. DEXAMETHASONE. [Concomitant]
     Active Substance: DEXAMETHASONE
  18. MYRBETRIQ [Concomitant]
     Active Substance: MIRABEGRON
  19. METHYLPREDNISOLONE. [Suspect]
     Active Substance: METHYLPREDNISOLONE
     Indication: PREMEDICATION
     Dosage: MOST RECENT DATE: 21/MAY/2020
     Route: 065
  20. ESTROGEL [Concomitant]
     Active Substance: ESTRADIOL
     Dosage: YES

REACTIONS (19)
  - Back pain [Not Recovered/Not Resolved]
  - Oral herpes [Recovered/Resolved]
  - Gait disturbance [Not Recovered/Not Resolved]
  - Pruritus [Recovering/Resolving]
  - Pain [Unknown]
  - Insomnia [Recovered/Resolved]
  - Euphoric mood [Recovered/Resolved]
  - Headache [Recovered/Resolved]
  - Aphthous ulcer [Recovered/Resolved]
  - Nasopharyngitis [Recovered/Resolved]
  - Pain in extremity [Not Recovered/Not Resolved]
  - Gastrointestinal infection [Recovered/Resolved]
  - Anxiety [Unknown]
  - Arthralgia [Not Recovered/Not Resolved]
  - Drug-induced liver injury [Not Recovered/Not Resolved]
  - Insomnia [Unknown]
  - Eyelid infection [Recovering/Resolving]
  - Eye pruritus [Recovering/Resolving]
  - Eyelid disorder [Not Recovered/Not Resolved]

NARRATIVE: CASE EVENT DATE: 20181019
